FAERS Safety Report 14071315 (Version 1)
Quarter: 2017Q4

REPORT INFORMATION
  Report Type: Spontaneous
  Country: US (occurrence: US)
  Receive Date: 20171011
  Receipt Date: 20171011
  Transmission Date: 20180321
  Serious: Yes (Other)
  Sender: FDA-Public Use
  Company Number: US-BION-006390

PATIENT
  Age: 59 Year
  Sex: Female

DRUGS (1)
  1. PROGESTERONE BION UNKNOWN [Suspect]
     Active Substance: PROGESTERONE
     Indication: PRODUCT USED FOR UNKNOWN INDICATION
     Dosage: 200 MG ONCE A DAY AT NIGHT FOR 2 DAYS

REACTIONS (1)
  - Vaginal haemorrhage [Recovered/Resolved]
